FAERS Safety Report 8404988-3 (Version None)
Quarter: 2012Q2

REPORT INFORMATION
  Report Type: 
  Country: None (occurrence: None)
  Receive Date: 20120601
  Receipt Date: 20120116
  Transmission Date: 20120825
  Serious: No
  Sender: FDA-Public Use
  Company Number: US-NOVEN-12US003939

PATIENT
  Sex: Male
  Weight: 24.49 kg

DRUGS (1)
  1. DAYTRANA [Suspect]
     Indication: ATTENTION DEFICIT/HYPERACTIVITY DISORDER
     Dosage: 15 MG
     Route: 062
     Dates: start: 20110101

REACTIONS (4)
  - PRODUCT QUALITY ISSUE [None]
  - INCORRECT DRUG ADMINISTRATION DURATION [None]
  - APPLICATION SITE PAIN [None]
  - APPLICATION SITE ERYTHEMA [None]
